FAERS Safety Report 25809732 (Version 2)
Quarter: 2025Q3

REPORT INFORMATION
  Report Type: Other
  Country: US (occurrence: US)
  Receive Date: 20250916
  Receipt Date: 20250921
  Transmission Date: 20251021
  Serious: No
  Sender: TRAVERE THERAPEUTICS
  Company Number: US-TRAVERE-2025TVT01149

PATIENT
  Age: 27 Year
  Sex: Male

DRUGS (3)
  1. FILSPARI [Suspect]
     Active Substance: SPARSENTAN
     Indication: IgA nephropathy
     Route: 048
  2. FILSPARI [Suspect]
     Active Substance: SPARSENTAN
     Route: 048
     Dates: start: 202506
  3. FILSPARI [Suspect]
     Active Substance: SPARSENTAN
     Dosage: 200 MG TWICE DAILY
     Route: 048

REACTIONS (5)
  - Hyperhidrosis [Unknown]
  - Dizziness [Unknown]
  - Blood pressure systolic decreased [None]
  - Back pain [Recovered/Resolved]
  - Off label use [Unknown]
